FAERS Safety Report 14348923 (Version 3)
Quarter: 2018Q1

REPORT INFORMATION
  Report Type: Report from Study
  Country: GB (occurrence: GB)
  Receive Date: 20180104
  Receipt Date: 20180301
  Transmission Date: 20180509
  Serious: Yes (Other)
  Sender: FDA-Public Use
  Company Number: GB-ROCHE-2047014

PATIENT
  Sex: Female

DRUGS (1)
  1. ROACTEMRA [Suspect]
     Active Substance: TOCILIZUMAB
     Indication: RHEUMATOID ARTHRITIS
     Route: 058
     Dates: start: 20171012

REACTIONS (6)
  - Aphonia [Unknown]
  - Dyspnoea [Unknown]
  - Influenza [Unknown]
  - Increased upper airway secretion [Unknown]
  - Cough [Unknown]
  - Malaise [Unknown]
